FAERS Safety Report 6344244-0 (Version None)
Quarter: 2009Q3

REPORT INFORMATION
  Report Type: 
  Country: None (occurrence: None)
  Receive Date: 20090903
  Receipt Date: 20090822
  Transmission Date: 20100115
  Serious: Yes (Hospitalization)
  Sender: FDA-Public Use
  Company Number: 1-19330398

PATIENT
  Age: 17 Year
  Sex: Male
  Weight: 107.9561 kg

DRUGS (3)
  1. SOLODYN [Suspect]
     Indication: ACNE
     Dosage: 135 MG, DAILY, ORAL
     Route: 048
     Dates: start: 20090712, end: 20090725
  2. PREVACID [Concomitant]
  3. METFORMIN HCL [Concomitant]

REACTIONS (17)
  - ARTHRALGIA [None]
  - ARTHRITIS [None]
  - ASTHENIA [None]
  - BLOOD POTASSIUM DECREASED [None]
  - BLOOD URIC ACID INCREASED [None]
  - DRUG HYPERSENSITIVITY [None]
  - DYSPNOEA [None]
  - HYPERHIDROSIS [None]
  - INSOMNIA [None]
  - MUSCLE SPASMS [None]
  - MYALGIA [None]
  - OEDEMA PERIPHERAL [None]
  - PAIN IN EXTREMITY [None]
  - PAIN IN JAW [None]
  - PRURITUS [None]
  - SWELLING FACE [None]
  - URTICARIA [None]
